FAERS Safety Report 9469759 (Version 2)
Quarter: 2013Q3

REPORT INFORMATION
  Report Type: Report from Study
  Country: US (occurrence: US)
  Receive Date: 20130822
  Receipt Date: 20130822
  Transmission Date: 20140515
  Serious: Yes (Other)
  Sender: FDA-Public Use
  Company Number: US-JNJFOC-20130400116

PATIENT
  Age: 68 Year
  Sex: Male
  Weight: 85.28 kg

DRUGS (7)
  1. REMICADE [Suspect]
     Indication: PSORIATIC ARTHROPATHY
     Dosage: DRUG ONCE EVERY 8 WEEKS
     Route: 042
     Dates: start: 20130328
  2. OMEPRAZOLE [Concomitant]
     Indication: PHARYNGEAL DISORDER
     Route: 065
  3. SIMVASTATIN [Concomitant]
     Indication: BLOOD CHOLESTEROL
     Route: 065
  4. LOVASTATIN [Concomitant]
     Indication: BLOOD PRESSURE
     Dosage: STOPPED 15-MAY (YEAR UNSPECIFIED)
     Route: 065
  5. CELEBREX [Concomitant]
     Indication: ARTHRALGIA
     Route: 065
  6. CELEBREX [Concomitant]
     Indication: INFLAMMATION
     Route: 065
  7. CLONAZEPAM [Concomitant]
     Indication: SLEEP APNOEA SYNDROME
     Route: 065

REACTIONS (5)
  - Blood pressure increased [Recovered/Resolved]
  - Arthralgia [Unknown]
  - Pain in extremity [Unknown]
  - Muscle spasms [Not Recovered/Not Resolved]
  - Pain [Not Recovered/Not Resolved]
